FAERS Safety Report 9241980 (Version 2)
Quarter: 2013Q2

REPORT INFORMATION
  Report Type: Spontaneous
  Country: GR (occurrence: GR)
  Receive Date: 20130419
  Receipt Date: 20130507
  Transmission Date: 20140414
  Serious: Yes (Other)
  Sender: FDA-Public Use
  Company Number: GR-ROCHE-1214824

PATIENT
  Age: 66 Year
  Sex: Male

DRUGS (1)
  1. XOLAIR [Suspect]
     Indication: PRODUCT USED FOR UNKNOWN INDICATION
     Route: 065

REACTIONS (6)
  - Dyspnoea [Unknown]
  - Bone pain [Unknown]
  - Neck pain [Unknown]
  - Back pain [Unknown]
  - Arthralgia [Unknown]
  - Drug ineffective [Unknown]
